FAERS Safety Report 10956596 (Version 1)
Quarter: 2015Q1

REPORT INFORMATION
  Report Type: Spontaneous
  Country: US (occurrence: None)
  Receive Date: 20150325
  Receipt Date: 20150325
  Transmission Date: 20150721
  Serious: Yes (Disabling)
  Sender: FDA-Public Use
  Company Number: None

PATIENT
  Age: 23 Year
  Sex: Female

DRUGS (5)
  1. NEXPLANON [Suspect]
     Active Substance: ETONOGESTREL
     Indication: CONTRACEPTION
     Dosage: INSERTED INTO MY LEFT ARM
     Dates: start: 20120817
  2. CEPHALEXIN. [Concomitant]
     Active Substance: CEPHALEXIN
  3. IRON SUPPLEMENTS [Concomitant]
     Active Substance: IRON
  4. METRONIDAZOLE. [Concomitant]
     Active Substance: METRONIDAZOLE
  5. HYDROCODONE (PAIN KILLERS) [Concomitant]

REACTIONS (1)
  - Adverse drug reaction [None]

NARRATIVE: CASE EVENT DATE: 201311
